FAERS Safety Report 20292449 (Version 1)
Quarter: 2022Q1

REPORT INFORMATION
  Report Type: Spontaneous
  Country: US (occurrence: US)
  Receive Date: 20220104
  Receipt Date: 20220104
  Transmission Date: 20220423
  Serious: No
  Sender: FDA-Public Use
  Company Number: US-GALDERMA-US2021016020

PATIENT

DRUGS (2)
  1. DIFFERIN GEL [Suspect]
     Active Substance: ADAPALENE
     Indication: Acne
     Dosage: 1 DOSAGE FORM, ONCE A DAY
     Route: 061
  2. MINOXIDIL [Concomitant]
     Active Substance: MINOXIDIL
     Indication: Hair growth abnormal

REACTIONS (2)
  - Acne [Recovered/Resolved]
  - Drug ineffective [Not Recovered/Not Resolved]
